FAERS Safety Report 8818335 (Version 1)
Quarter: 2012Q4

REPORT INFORMATION
  Report Type: 
  Country: US (occurrence: US)
  Receive Date: 20121001
  Receipt Date: 20121001
  Transmission Date: 20130627
  Serious: No
  Sender: FDA-Public Use
  Company Number: US-009507513-1207USA009805

PATIENT
  Sex: Female

DRUGS (2)
  1. COZAAR [Suspect]
     Dosage: 50 mg, qd
     Route: 048
  2. LOSARTAN POTASSIUM TABLETS [Suspect]

REACTIONS (3)
  - Drug dose omission [Unknown]
  - No adverse event [Unknown]
  - Adverse event [Unknown]
